FAERS Safety Report 18371106 (Version 1)
Quarter: 2020Q4

REPORT INFORMATION
  Report Type: Spontaneous
  Country: US (occurrence: US)
  Receive Date: 20201012
  Receipt Date: 20201012
  Transmission Date: 20210114
  Serious: Yes (Other)
  Sender: FDA-Public Use
  Company Number: US-BAYER-2020-212493

PATIENT
  Age: 32 Year
  Sex: Female

DRUGS (7)
  1. HYDROCODONE [Concomitant]
     Active Substance: HYDROCODONE
  2. ACETAZOLAMIDE. [Suspect]
     Active Substance: ACETAZOLAMIDE
     Dosage: DAILY DOSE 1500 MG
  3. ALBUTEROL HFA [Concomitant]
     Active Substance: ALBUTEROL SULFATE
  4. QUETIAPINE. [Concomitant]
     Active Substance: QUETIAPINE
  5. PARACETAMOL [Suspect]
     Active Substance: ACETAMINOPHEN
  6. INSULIN [Concomitant]
     Active Substance: INSULIN NOS
  7. SERTRALINE [Concomitant]
     Active Substance: SERTRALINE HYDROCHLORIDE

REACTIONS (3)
  - Idiopathic intracranial hypertension [None]
  - Meconium in amniotic fluid [None]
  - Maternal exposure during pregnancy [None]
